FAERS Safety Report 9515668 (Version 2)
Quarter: 2013Q3

REPORT INFORMATION
  Report Type: Spontaneous
  Country: JP (occurrence: JP)
  Receive Date: 20130911
  Receipt Date: 20130911
  Transmission Date: 20140515
  Serious: Yes (Hospitalization)
  Sender: FDA-Public Use
  Company Number: JP-MERCK-1211JPN008720

PATIENT
  Age: 66 Year
  Sex: Female

DRUGS (17)
  1. BONALON [Suspect]
     Indication: OSTEOPOROSIS
     Dosage: 35 MG, QD
     Route: 048
     Dates: start: 20090703, end: 20100309
  2. BONALON [Suspect]
     Dosage: 35 MG, QD
     Route: 048
     Dates: start: 20100914, end: 20110329
  3. BONALON [Suspect]
     Dosage: UNK MG, UNK
     Route: 048
     Dates: start: 2001
  4. BONALON [Suspect]
     Dosage: 5 MG, QD
     Dates: start: 20050120, end: 20090630
  5. CELECOX [Suspect]
     Indication: RHEUMATOID ARTHRITIS
     Dosage: UNK
     Route: 048
     Dates: start: 20080527, end: 20110912
  6. PREDNISOLONE [Suspect]
     Indication: RHEUMATOID ARTHRITIS
     Dosage: UNK
     Route: 048
     Dates: end: 2011
  7. PREDNISOLONE [Suspect]
     Indication: PYODERMA GANGRENOSUM
  8. RHEUMATREX [Concomitant]
     Indication: RHEUMATOID ARTHRITIS
     Dosage: UNK
     Route: 048
     Dates: start: 2001, end: 2007
  9. RHEUMATREX [Concomitant]
     Dosage: UNK
     Route: 048
     Dates: start: 2003, end: 2011
  10. REMICADE [Concomitant]
     Indication: RHEUMATOID ARTHRITIS
     Dosage: UNK
     Dates: start: 2006, end: 2010
  11. ORENCIA [Concomitant]
     Indication: RHEUMATOID ARTHRITIS
     Dosage: 500 MG, QD
     Dates: start: 2010, end: 2011
  12. FOLIAMIN [Concomitant]
     Indication: FOLATE DEFICIENCY
     Dosage: UNK
     Route: 048
     Dates: start: 20060817, end: 20110523
  13. DIOVAN [Concomitant]
     Indication: HYPERTENSION
     Dosage: 80 MG, QD
     Route: 048
     Dates: start: 20031127, end: 20110620
  14. TAKEPRON [Concomitant]
     Indication: GASTROOESOPHAGEAL REFLUX DISEASE
     Dosage: 15 MG, QD
     Route: 048
     Dates: start: 20070110
  15. AMOBAN [Concomitant]
     Indication: INSOMNIA
     Dosage: 10 MG, QD
     Route: 048
     Dates: start: 20031126, end: 20111002
  16. MOHRUS [Concomitant]
     Indication: OSTEOARTHRITIS
     Dosage: UNK
     Dates: start: 20051013, end: 20100308
  17. FESIN [Concomitant]
     Indication: IRON DEFICIENCY ANAEMIA
     Dosage: UNK
     Dates: start: 20060525, end: 20100309

REACTIONS (1)
  - Osteomyelitis [Recovered/Resolved with Sequelae]
